FAERS Safety Report 4404456-X (Version None)
Quarter: 2004Q3

REPORT INFORMATION
  Report Type: 
  Country: None (occurrence: None)
  Receive Date: 20040721
  Receipt Date: 20040721
  Transmission Date: 20050211
  Serious: Yes (Hospitalization)
  Sender: FDA-Public Use
  Company Number: None

PATIENT
  Age: 40 Year
  Sex: Male
  Weight: 99.3377 kg

DRUGS (6)
  1. IMURAN [Suspect]
     Indication: MULTIPLE SCLEROSIS
     Dosage: 150 MG QD PO
     Route: 048
     Dates: start: 20040309
  2. ZOLOFT [Concomitant]
  3. AMANTADINE HCL [Concomitant]
  4. PROVIGIL [Concomitant]
  5. LIPITOR [Concomitant]
  6. IBUPROFEN [Concomitant]

REACTIONS (4)
  - ANKLE FRACTURE [None]
  - ASTHENIA [None]
  - BALANCE DISORDER [None]
  - FALL [None]
